FAERS Safety Report 18373277 (Version 1)
Quarter: 2020Q4

REPORT INFORMATION
  Report Type: Spontaneous
  Country: US (occurrence: US)
  Receive Date: 20201012
  Receipt Date: 20201012
  Transmission Date: 20210114
  Serious: No
  Sender: FDA-Public Use
  Company Number: US-JUBILANT CADISTA PHARMACEUTICALS-2019JUB00408

PATIENT
  Sex: Female

DRUGS (2)
  1. METHYLPREDNISOLONE. [Suspect]
     Active Substance: METHYLPREDNISOLONE
     Indication: SCLERODERMA
     Dosage: UNK
     Dates: start: 2019
  2. PREDNISONE. [Suspect]
     Active Substance: PREDNISONE
     Indication: SCLERODERMA
     Dosage: UNK

REACTIONS (2)
  - Product substitution issue [Unknown]
  - Drug ineffective [Unknown]
